FAERS Safety Report 10039310 (Version 1)
Quarter: 2014Q1

REPORT INFORMATION
  Report Type: Spontaneous
  Country: GB (occurrence: GB)
  Receive Date: 20140326
  Receipt Date: 20140326
  Transmission Date: 20141002
  Serious: Yes (Other)
  Sender: FDA-Public Use
  Company Number: GB-BRISTOL-MYERS SQUIBB COMPANY-20548616

PATIENT
  Sex: 0

DRUGS (4)
  1. APIXABAN [Suspect]
     Indication: HIP ARTHROPLASTY
  2. APIXABAN [Interacting]
     Indication: KNEE ARTHROPLASTY
  3. METFORMIN HCL [Interacting]
     Indication: DIABETES MELLITUS
  4. IBUPROFEN [Suspect]

REACTIONS (2)
  - Creatinine renal clearance abnormal [Unknown]
  - Drug interaction [Unknown]
